FAERS Safety Report 6607795-7 (Version None)
Quarter: 2010Q1

REPORT INFORMATION
  Report Type: 
  Country: None (occurrence: None)
  Receive Date: 20100212
  Receipt Date: 20091026
  Transmission Date: 20100710
  Serious: No
  Sender: FDA-Public Use
  Company Number: 1000009716

PATIENT
  Age: 80 Year
  Sex: Female

DRUGS (7)
  1. SAVELLA [Suspect]
     Indication: FIBROMYALGIA
     Dosage: 12.5 MG (12.5 MG, 1 IN 1 D), ORAL, 25 MG (12.5 M G, 2 IN 1 D), ORAL
     Route: 048
     Dates: start: 20091019, end: 20091019
  2. SAVELLA [Suspect]
     Indication: FIBROMYALGIA
     Dosage: 12.5 MG (12.5 MG, 1 IN 1 D), ORAL, 25 MG (12.5 M G, 2 IN 1 D), ORAL
     Route: 048
     Dates: start: 20091020, end: 20091021
  3. SAVELLA [Suspect]
     Indication: FIBROMYALGIA
     Dosage: 50 MG (25 MG, 2 IN 1 D), ORAL
     Route: 048
     Dates: start: 20091022, end: 20091024
  4. VOLTAREN [Concomitant]
  5. ASPIRIN [Concomitant]
  6. CALCIUM [Concomitant]
  7. CENTRUM [Concomitant]

REACTIONS (2)
  - ABDOMINAL PAIN [None]
  - MENSTRUAL DISORDER [None]
